FAERS Safety Report 4948522-9 (Version None)
Quarter: 2006Q1

REPORT INFORMATION
  Report Type: 
  Country: None (occurrence: None)
  Receive Date: 20060320
  Receipt Date: 20060208
  Transmission Date: 20060701
  Serious: Yes (Death, Hospitalization)
  Sender: FDA-Public Use
  Company Number: US-MERCK-0602USA02292

PATIENT
  Age: 82 Year
  Sex: Female

DRUGS (1)
  1. VIOXX [Suspect]
     Route: 048
     Dates: start: 20020601, end: 20040223

REACTIONS (4)
  - CEREBROVASCULAR ACCIDENT [None]
  - DEMENTIA [None]
  - HYPERTENSION [None]
  - MYOCARDIAL ISCHAEMIA [None]
